FAERS Safety Report 20124066 (Version 1)
Quarter: 2021Q4

REPORT INFORMATION
  Report Type: Spontaneous
  Country: US (occurrence: US)
  Receive Date: 20211129
  Receipt Date: 20211129
  Transmission Date: 20220303
  Serious: No
  Sender: FDA-Public Use
  Company Number: US-GLAXOSMITHKLINE-USCH2021084639

PATIENT
  Age: 68 Year
  Sex: Male

DRUGS (4)
  1. VOLTAREN [Interacting]
     Active Substance: DICLOFENAC SODIUM
     Indication: Back pain
     Dosage: 3 G, TID
     Dates: start: 20211022, end: 20211105
  2. VOLTAREN [Interacting]
     Active Substance: DICLOFENAC SODIUM
     Indication: Rib fracture
  3. ASPIRIN [Interacting]
     Active Substance: ASPIRIN
     Indication: Back pain
     Dosage: UNK
     Dates: start: 202111
  4. OMEPRAZOLE [Concomitant]
     Active Substance: OMEPRAZOLE
     Indication: Abdominal injury
     Dosage: UNK

REACTIONS (3)
  - Off label use [Unknown]
  - Labelled drug-drug interaction medication error [Unknown]
  - Drug ineffective for unapproved indication [Unknown]
